FAERS Safety Report 6170078-6 (Version None)
Quarter: 2009Q2

REPORT INFORMATION
  Report Type: 
  Country: None (occurrence: None)
  Receive Date: 20090428
  Receipt Date: 20090422
  Transmission Date: 20091009
  Serious: Yes (Other)
  Sender: FDA-Public Use
  Company Number: A0779925A

PATIENT
  Age: 38 Year
  Sex: Female

DRUGS (3)
  1. IMITREX [Suspect]
     Indication: MIGRAINE
     Dosage: 25MG AS REQUIRED
     Route: 048
     Dates: start: 20020101, end: 20020101
  2. IMITREX [Suspect]
     Route: 045
     Dates: start: 20020601, end: 20020601
  3. ORTHO-NOVUM [Concomitant]

REACTIONS (6)
  - CEREBROVASCULAR ACCIDENT [None]
  - DROOLING [None]
  - LETHARGY [None]
  - MUSCULAR WEAKNESS [None]
  - NASAL DISCOMFORT [None]
  - POSTURE ABNORMAL [None]
